FAERS Safety Report 21001177 (Version 1)
Quarter: 2022Q2

REPORT INFORMATION
  Report Type: Spontaneous
  Country: US (occurrence: US)
  Receive Date: 20220624
  Receipt Date: 20220624
  Transmission Date: 20220721
  Serious: No
  Sender: FDA-Public Use
  Company Number: US-BioHaven Pharmaceuticals-2022BHV000803

PATIENT
  Age: 39 Year
  Sex: Female
  Weight: 89.892 kg

DRUGS (1)
  1. NURTEC ODT [Suspect]
     Active Substance: RIMEGEPANT SULFATE
     Indication: Migraine prophylaxis
     Dosage: 1 TABLET
     Route: 065
     Dates: start: 20220310

REACTIONS (2)
  - Somnolence [Not Recovered/Not Resolved]
  - Product prescribing error [Not Recovered/Not Resolved]
